FAERS Safety Report 9779920 (Version 1)
Quarter: 2013Q4

REPORT INFORMATION
  Report Type: Spontaneous
  Country: FR (occurrence: FR)
  Receive Date: 20131223
  Receipt Date: 20131223
  Transmission Date: 20140711
  Serious: Yes (Hospitalization)
  Sender: FDA-Public Use
  Company Number: FR-ACTAVIS-2013-23295

PATIENT
  Age: 47 Year
  Sex: Female
  Weight: 47 kg

DRUGS (3)
  1. GEMCITABINE [Suspect]
     Indication: LUNG NEOPLASM MALIGNANT
     Dosage: 1480 MG, SINGLE (THIRD INJECTION) OVER 30 MIN IN 250 ML SODIUM CHLORIDE
     Route: 042
     Dates: start: 20130711, end: 20130711
  2. GEMCITABINE [Suspect]
     Dosage: SLOW INFUSION OVER 1.30 HOURS
     Dates: start: 20130725
  3. ONDANSETRON [Concomitant]
     Indication: PRODUCT USED FOR UNKNOWN INDICATION
     Dosage: UNK, UNKNOWN
     Route: 065

REACTIONS (3)
  - Dizziness [Recovered/Resolved]
  - Feeling drunk [Recovered/Resolved]
  - Headache [Recovered/Resolved]
